FAERS Safety Report 19714314 (Version 1)
Quarter: 2021Q3

REPORT INFORMATION
  Report Type: Spontaneous
  Country: US (occurrence: US)
  Receive Date: 20210818
  Receipt Date: 20210818
  Transmission Date: 20211014
  Serious: No
  Sender: FDA-Public Use
  Company Number: None

PATIENT
  Age: 24 Year
  Sex: Female
  Weight: 72 kg

DRUGS (11)
  1. MAGNESIUM [Concomitant]
     Active Substance: MAGNESIUM
  2. NAPROXEN. [Concomitant]
     Active Substance: NAPROXEN
  3. PROPRANOLOL [Concomitant]
     Active Substance: PROPRANOLOL HYDROCHLORIDE
  4. EMGALITY [Concomitant]
     Active Substance: GALCANEZUMAB-GNLM
  5. COMPAZINE [Suspect]
     Active Substance: PROCHLORPERAZINE MALEATE
     Indication: MIGRAINE
     Route: 042
     Dates: start: 20210804, end: 20210804
  6. SUMATRIPTAN. [Concomitant]
     Active Substance: SUMATRIPTAN
  7. WELLBUTRIN [Concomitant]
     Active Substance: BUPROPION HYDROCHLORIDE
  8. ZOFRAN [Concomitant]
     Active Substance: ONDANSETRON HYDROCHLORIDE
  9. PRISTIQ EXTENDED?RELEASE [Concomitant]
     Active Substance: DESVENLAFAXINE SUCCINATE
  10. CLARITIN [Concomitant]
     Active Substance: LORATADINE
  11. NORETHINDRONE. [Concomitant]
     Active Substance: NORETHINDRONE

REACTIONS (4)
  - Nausea [None]
  - Panic attack [None]
  - Muscle contractions involuntary [None]
  - Tremor [None]

NARRATIVE: CASE EVENT DATE: 20210804
